FAERS Safety Report 24039427 (Version 7)
Quarter: 2025Q3

REPORT INFORMATION
  Report Type: Spontaneous
  Country: US (occurrence: US)
  Receive Date: 20240702
  Receipt Date: 20250829
  Transmission Date: 20251021
  Serious: No
  Sender: SANOFI AVENTIS
  Company Number: US-SA-SAC20240626001217

PATIENT
  Age: 39 Year
  Sex: Male

DRUGS (5)
  1. ALPROLIX [Suspect]
     Active Substance: EFTRENONACOG ALFA
     Indication: Factor IX deficiency
     Dosage: 12000 U, Q10D
     Route: 042
     Dates: start: 201501
  2. ALPROLIX [Suspect]
     Active Substance: EFTRENONACOG ALFA
     Indication: Factor IX deficiency
     Dosage: 12000 U, Q10D
     Route: 042
     Dates: start: 201501
  3. ALPROLIX [Suspect]
     Active Substance: EFTRENONACOG ALFA
     Dosage: 3000 U, Q10D
     Route: 042
     Dates: start: 201501
  4. ALPROLIX [Suspect]
     Active Substance: EFTRENONACOG ALFA
     Dosage: 3000 U, Q10D
     Route: 042
     Dates: start: 201501
  5. BENEFIX [Concomitant]
     Active Substance: COAGULATION FACTOR IX RECOMBINANT HUMAN\ISOPROPYL ALCOHOL

REACTIONS (10)
  - Skin laceration [Recovered/Resolved]
  - Traumatic haemorrhage [Recovered/Resolved]
  - Gingival bleeding [Not Recovered/Not Resolved]
  - Skin haemorrhage [Not Recovered/Not Resolved]
  - Mouth haemorrhage [Unknown]
  - Haemorrhage [Unknown]
  - Tendon injury [Unknown]
  - Traumatic haemorrhage [Unknown]
  - Traumatic haemorrhage [Unknown]
  - Peripheral swelling [Unknown]

NARRATIVE: CASE EVENT DATE: 20240101
